FAERS Safety Report 26041460 (Version 2)
Quarter: 2025Q4

REPORT INFORMATION
  Report Type: Spontaneous
  Country: US (occurrence: US)
  Receive Date: 20251113
  Receipt Date: 20251231
  Transmission Date: 20260118
  Serious: No
  Sender: TAKEDA
  Company Number: US-TAKEDA-2025TUS101395

PATIENT

DRUGS (4)
  1. ADDERALL XR [Suspect]
     Active Substance: AMPHETAMINE ASPARTATE\AMPHETAMINE SULFATE\DEXTROAMPHETAMINE SACCHARATE\DEXTROAMPHETAMINE SULFATE
     Indication: Product used for unknown indication
     Dosage: UNK
  2. VYVANSE [Suspect]
     Active Substance: LISDEXAMFETAMINE DIMESYLATE
     Indication: Product used for unknown indication
     Dosage: UNK
  3. ADDERALL [Suspect]
     Active Substance: AMPHETAMINE ASPARTATE\AMPHETAMINE SULFATE\DEXTROAMPHETAMINE SACCHARATE\DEXTROAMPHETAMINE SULFATE
     Indication: Product used for unknown indication
     Dosage: UNK
  4. DEXTROAMPHETAMINE SACCHARATE, AMPHETAMINE ASPARTATE, DEXTROAMPHETAMINE [Suspect]
     Active Substance: AMPHETAMINE ASPARTATE\AMPHETAMINE SULFATE\DEXTROAMPHETAMINE SACCHARATE\DEXTROAMPHETAMINE SULFATE
     Indication: Product used for unknown indication
     Dosage: UNK

REACTIONS (18)
  - Disturbance in attention [Unknown]
  - Somnolence [Unknown]
  - Drug ineffective [Unknown]
  - Brain fog [Unknown]
  - Fatigue [Unknown]
  - Myalgia [Unknown]
  - Hypoglycaemia [Unknown]
  - Depersonalisation/derealisation disorder [Unknown]
  - Palpitations [Unknown]
  - Ageusia [Unknown]
  - Anosmia [Unknown]
  - Sinus disorder [Unknown]
  - Dissociation [Unknown]
  - Vision blurred [Unknown]
  - Depression [Unknown]
  - Heart rate increased [Unknown]
  - Nausea [Unknown]
  - Confusional state [Unknown]
